FAERS Safety Report 10563090 (Version 1)
Quarter: 2014Q4

REPORT INFORMATION
  Report Type: Spontaneous
  Country: US (occurrence: None)
  Receive Date: 20141103
  Receipt Date: 20141103
  Transmission Date: 20150529
  Serious: No
  Sender: FDA-Public Use
  Company Number: None

PATIENT
  Age: 71 Year
  Sex: Male

DRUGS (13)
  1. FLUCONAZOLE. [Concomitant]
     Active Substance: FLUCONAZOLE
  2. LOPERAMIDE [Concomitant]
     Active Substance: LOPERAMIDE
  3. ONDANSETRON [Concomitant]
     Active Substance: ONDANSETRON
  4. ACYCLOVIR. [Concomitant]
     Active Substance: ACYCLOVIR
  5. FILGRASTIM [Concomitant]
     Active Substance: FILGRASTIM
  6. METOPROLOL [Concomitant]
     Active Substance: METOPROLOL
  7. TOBRAMYCIN. [Concomitant]
     Active Substance: TOBRAMYCIN
  8. ACETAMINOPHEN. [Concomitant]
     Active Substance: ACETAMINOPHEN
  9. BACLOFEN. [Concomitant]
     Active Substance: BACLOFEN
  10. DIPHENHYDRAMINE [Concomitant]
     Active Substance: DIPHENHYDRAMINE
  11. PRAVASTATIN [Concomitant]
     Active Substance: PRAVASTATIN\PRAVASTATIN SODIUM
  12. VANCOMYCIN [Concomitant]
     Active Substance: VANCOMYCIN
  13. REPAGLINIDE. [Suspect]
     Active Substance: REPAGLINIDE
     Indication: HYPERGLYCAEMIA
     Route: 048

REACTIONS (1)
  - Hypoglycaemia [None]

NARRATIVE: CASE EVENT DATE: 20140823
